FAERS Safety Report 18627329 (Version 1)
Quarter: 2020Q4

REPORT INFORMATION
  Report Type: Spontaneous
  Country: FR (occurrence: FR)
  Receive Date: 20201217
  Receipt Date: 20201217
  Transmission Date: 20210114
  Serious: Yes (Other)
  Sender: FDA-Public Use
  Company Number: NVSC2020FR330702

PATIENT
  Age: 2 Year
  Sex: Male
  Weight: 18 kg

DRUGS (2)
  1. AMOXICILLINE [Suspect]
     Active Substance: AMOXICILLIN
     Indication: RASH SCARLATINIFORM
     Dosage: 500 MG,QD
     Route: 048
     Dates: start: 20200510, end: 20200516
  2. NEISVAC-C [Suspect]
     Active Substance: MENINGOCOCCAL POLYSACCHARIDE VACCINE C
     Indication: IMMUNISATION
     Dosage: 1 DF (1 TOTAL)
     Route: 065
     Dates: start: 20170506, end: 20170506

REACTIONS (4)
  - Erythema multiforme [Recovered/Resolved]
  - Rash scarlatiniform [Recovered/Resolved]
  - Urticaria chronic [Recovered/Resolved]
  - Pyrexia [Recovered/Resolved]

NARRATIVE: CASE EVENT DATE: 201705
